FAERS Safety Report 13997383 (Version 2)
Quarter: 2017Q4

REPORT INFORMATION
  Report Type: Spontaneous
  Country: DE (occurrence: DE)
  Receive Date: 20170921
  Receipt Date: 20171004
  Transmission Date: 20180321
  Serious: Yes (Hospitalization, Other)
  Sender: FDA-Public Use
  Company Number: GXKR2017DE004743

PATIENT
  Age: 66 Year
  Sex: Male
  Weight: 90 kg

DRUGS (2)
  1. SIMVASTATIN HEXAL [Suspect]
     Active Substance: SIMVASTATIN
     Indication: BLOOD CHOLESTEROL INCREASED
     Dosage: 20 MG, QD
     Route: 048
     Dates: start: 2012
  2. GRAPEFRUIT JUICE [Interacting]
     Active Substance: GRAPEFRUIT JUICE
     Indication: PRODUCT USED FOR UNKNOWN INDICATION
     Dosage: UNK UKN, UNK
     Route: 048

REACTIONS (12)
  - Chest discomfort [Unknown]
  - Pain [Not Recovered/Not Resolved]
  - Dysaesthesia [Unknown]
  - Food interaction [Not Recovered/Not Resolved]
  - Abdominal distension [Unknown]
  - Inguinal hernia [Unknown]
  - Muscle twitching [Recovering/Resolving]
  - Abdominal pain lower [Unknown]
  - Neuropathy peripheral [Unknown]
  - Parkinsonism [Not Recovered/Not Resolved]
  - Eructation [Recovering/Resolving]
  - Paraesthesia [Recovering/Resolving]

NARRATIVE: CASE EVENT DATE: 20170110
